FAERS Safety Report 5452766-X (Version None)
Quarter: 2007Q3

REPORT INFORMATION
  Report Type: 
  Country: None (occurrence: None)
  Receive Date: 20070914
  Receipt Date: 20070904
  Transmission Date: 20080115
  Serious: Yes (Congenital Anomaly)
  Sender: FDA-Public Use
  Company Number: HK-ROCHE-515338

PATIENT
  Age: 34 Year
  Sex: Female

DRUGS (1)
  1. PEGASYS [Suspect]
     Indication: HEPATITIS B
     Route: 065
     Dates: start: 20070615

REACTIONS (2)
  - ENDOMETRIAL HYPERTROPHY [None]
  - TERATOMA [None]
